FAERS Safety Report 5522525-8 (Version None)
Quarter: 2007Q4

REPORT INFORMATION
  Report Type: 
  Country: None (occurrence: None)
  Receive Date: 20071120
  Receipt Date: 20071112
  Transmission Date: 20080405
  Serious: Yes (Other)
  Sender: FDA-Public Use
  Company Number: GB-PFIZER INC-2007085714

PATIENT
  Sex: Female
  Weight: 69 kg

DRUGS (5)
  1. CHAMPIX [Suspect]
     Indication: SMOKING CESSATION THERAPY
     Route: 048
     Dates: start: 20070921, end: 20071015
  2. AMITRIPTYLINE [Concomitant]
     Indication: DEPRESSION
     Route: 048
  3. AMITRIPTYLINE [Concomitant]
     Indication: INSOMNIA
  4. ALL OTHER THERAPEUTIC PRODUCTS [Concomitant]
  5. PAROXETINE [Concomitant]
     Indication: DEPRESSION
     Route: 048

REACTIONS (1)
  - MANIA [None]
